FAERS Safety Report 4384754-9 (Version None)
Quarter: 2004Q2

REPORT INFORMATION
  Report Type: 
  Country: None (occurrence: None)
  Receive Date: 20040624
  Receipt Date: 20040624
  Transmission Date: 20050107
  Serious: Yes (Life-Threatening, Hospitalization, Disabling)
  Sender: FDA-Public Use
  Company Number: None

PATIENT
  Age: 48 Year
  Sex: Male
  Weight: 86.1834 kg

DRUGS (2)
  1. DEPO-MEDROL [Suspect]
     Dosage: 80 MG TWO EPIDURAL
     Route: 008
  2. LIDOCAINE [Suspect]

REACTIONS (4)
  - CONVULSION [None]
  - DEPRESSION [None]
  - NERVOUS SYSTEM DISORDER [None]
  - PSYCHOTIC DISORDER [None]
